FAERS Safety Report 10016693 (Version 2)
Quarter: 2014Q2

REPORT INFORMATION
  Report Type: Spontaneous
  Country: US (occurrence: US)
  Receive Date: 20140318
  Receipt Date: 20140403
  Transmission Date: 20141212
  Serious: No
  Sender: FDA-Public Use
  Company Number: US-US-EMD SERONO, INC.-7274775

PATIENT
  Sex: Male

DRUGS (1)
  1. REBIF [Suspect]
     Indication: PRODUCT USED FOR UNKNOWN INDICATION
     Route: 058
     Dates: start: 20131223, end: 201402

REACTIONS (10)
  - Migraine [Unknown]
  - Muscular weakness [Unknown]
  - Tremor [Unknown]
  - Dysgraphia [Unknown]
  - Dizziness [Unknown]
  - Speech disorder [Unknown]
  - Hemiparesis [Unknown]
  - Hypoaesthesia [Unknown]
  - Paraesthesia [Unknown]
  - Influenza like illness [Unknown]
